FAERS Safety Report 6111779-5 (Version None)
Quarter: 2009Q1

REPORT INFORMATION
  Report Type: 
  Country: None (occurrence: None)
  Receive Date: 20090311
  Receipt Date: 20081223
  Transmission Date: 20090719
  Serious: No
  Sender: FDA-Public Use
  Company Number: US-TYCO HEALTHCARE/MALLINCKRODT-T200802162

PATIENT
  Age: 31 Year
  Sex: Female

DRUGS (2)
  1. ACETAMINOPHEN AND HYDROCODONE BITARTRATE [Suspect]
     Indication: PAIN
  2. XANAX [Concomitant]

REACTIONS (4)
  - DYSPHAGIA [None]
  - DYSPNOEA [None]
  - MOBILITY DECREASED [None]
  - SWELLING [None]
